FAERS Safety Report 5328736-9 (Version None)
Quarter: 2007Q2

REPORT INFORMATION
  Report Type: 
  Country: None (occurrence: None)
  Receive Date: 20070518
  Receipt Date: 20070423
  Transmission Date: 20071010
  Serious: No
  Sender: FDA-Public Use
  Company Number: US-JNJFOC-20070404896

PATIENT
  Sex: Female

DRUGS (1)
  1. INVEGA [Suspect]
     Indication: DRUG USE FOR UNKNOWN INDICATION
     Route: 048

REACTIONS (2)
  - ABDOMINAL DISTENSION [None]
  - CONSTIPATION [None]
